FAERS Safety Report 7582521-6 (Version None)
Quarter: 2011Q2

REPORT INFORMATION
  Report Type: 
  Country: None (occurrence: None)
  Receive Date: 20110630
  Receipt Date: 20110623
  Transmission Date: 20111010
  Serious: Yes (Death, Other)
  Sender: FDA-Public Use
  Company Number: IL-GENZYME-CERZ-1002127

PATIENT
  Sex: Female
  Weight: 40 kg

DRUGS (3)
  1. FUSID [Concomitant]
     Indication: PRODUCT USED FOR UNKNOWN INDICATION
  2. CEREZYME [Suspect]
     Indication: GAUCHER'S DISEASE
     Dosage: 35 U/KG, Q2W
     Route: 042
     Dates: start: 20071018
  3. SILDENAFIL CITRATE [Concomitant]
     Indication: PRODUCT USED FOR UNKNOWN INDICATION

REACTIONS (5)
  - RESPIRATORY FAILURE [None]
  - RESTRICTIVE PULMONARY DISEASE [None]
  - KYPHOSIS [None]
  - MULTIPLE MYELOMA [None]
  - OSTEOPOROSIS [None]
